FAERS Safety Report 21918921 (Version 1)
Quarter: 2023Q1

REPORT INFORMATION
  Report Type: Spontaneous
  Country: CR (occurrence: CR)
  Receive Date: 20230127
  Receipt Date: 20230127
  Transmission Date: 20230417
  Serious: Yes (Other)
  Sender: FDA-Public Use
  Company Number: CR-SA-SAC20230125000913

PATIENT
  Age: 82 Year
  Sex: Male

DRUGS (1)
  1. TOUJEO [Suspect]
     Active Substance: INSULIN GLARGINE
     Indication: Type 2 diabetes mellitus
     Dosage: UNK UNK, QD
     Route: 058
     Dates: start: 2020

REACTIONS (3)
  - Thrombosis [Recovered/Resolved]
  - Skin ulcer [Recovered/Resolved]
  - Wound [Recovered/Resolved]

NARRATIVE: CASE EVENT DATE: 20221001
